FAERS Safety Report 6237490-8 (Version None)
Quarter: 2009Q2

REPORT INFORMATION
  Report Type: 
  Country: None (occurrence: None)
  Receive Date: 20090619
  Receipt Date: 20090115
  Transmission Date: 20091009
  Serious: Yes (Other)
  Sender: FDA-Public Use
  Company Number: US-AMGEN-KDL321704

PATIENT
  Sex: Female

DRUGS (8)
  1. ARANESP [Suspect]
     Indication: DIALYSIS
     Dates: start: 20070320
  2. NEUPOGEN [Concomitant]
     Indication: MULTIPLE MYELOMA
  3. ACTIVASE [Concomitant]
  4. ASCORBIC ACID [Concomitant]
  5. DOXERCALCIFEROL [Concomitant]
     Indication: DIALYSIS
  6. HEPARIN [Concomitant]
  7. LEVOCARNITINE [Concomitant]
  8. MORPHINE [Concomitant]

REACTIONS (1)
  - THERAPEUTIC RESPONSE DECREASED [None]
